FAERS Safety Report 5842255-2 (Version None)
Quarter: 2008Q3

REPORT INFORMATION
  Report Type: 
  Country: None (occurrence: None)
  Receive Date: 20080812
  Receipt Date: 20080807
  Transmission Date: 20090109
  Serious: Yes (Life-Threatening)
  Sender: FDA-Public Use
  Company Number: JP-SANOFI-SYNTHELABO-F01200801294

PATIENT
  Sex: Male
  Weight: 42 kg

DRUGS (7)
  1. CASODEX [Concomitant]
     Dosage: 80 MG
     Route: 048
     Dates: start: 20070611, end: 20080212
  2. EVIPROSTAT [Concomitant]
     Route: 048
     Dates: start: 20070611, end: 20080212
  3. LAFUTIDINE [Concomitant]
     Route: 048
     Dates: start: 20070611, end: 20080212
  4. FLIVAS [Concomitant]
     Route: 048
     Dates: start: 20070611, end: 20080212
  5. MUCOSTA [Concomitant]
     Route: 048
     Dates: start: 20070611, end: 20080212
  6. PROCYLIN [Concomitant]
     Indication: THROMBOSIS
     Route: 048
     Dates: start: 20070611, end: 20080212
  7. CLOPIDOGREL [Suspect]
     Indication: LACUNAR INFARCTION
     Route: 048
     Dates: start: 20070611, end: 20080212

REACTIONS (1)
  - AORTIC ANEURYSM RUPTURE [None]
